FAERS Safety Report 6709036-9 (Version None)
Quarter: 2010Q2

REPORT INFORMATION
  Report Type: 
  Country: None (occurrence: None)
  Receive Date: 20100504
  Receipt Date: 20100210
  Transmission Date: 20101027
  Serious: No
  Sender: FDA-Public Use
  Company Number: US-BAYER-200711843BWH

PATIENT
  Age: 53 Year
  Sex: Male

DRUGS (4)
  1. NEXAVAR [Suspect]
     Indication: HEPATIC NEOPLASM MALIGNANT
     Dosage: TOTAL DAILY DOSE: 400 MG  UNIT DOSE: 200 MG
     Route: 048
     Dates: start: 20100119, end: 20100210
  2. NEXAVAR [Suspect]
     Dosage: TOTAL DAILY DOSE: 800 MG  UNIT DOSE: 200 MG
     Route: 048
     Dates: start: 20070601, end: 20080101
  3. XANAX [Concomitant]
     Dosage: TOTAL DAILY DOSE: 1.50 MG
  4. MILK THISTLE [Concomitant]

REACTIONS (10)
  - ABDOMINAL PAIN [None]
  - ASTHENIA [None]
  - DIARRHOEA [None]
  - FATIGUE [None]
  - FEELING ABNORMAL [None]
  - FLUID INTAKE REDUCED [None]
  - HYPOPHAGIA [None]
  - INGROWING NAIL [None]
  - NAUSEA [None]
  - PAIN IN EXTREMITY [None]
